FAERS Safety Report 13989699 (Version 1)
Quarter: 2017Q3

REPORT INFORMATION
  Report Type: Report from Study
  Country: US (occurrence: US)
  Receive Date: 20170920
  Receipt Date: 20170920
  Transmission Date: 20171128
  Serious: Yes (Death)
  Sender: FDA-Public Use
  Company Number: US-ROCHE-1107836

PATIENT
  Age: 51 Year
  Sex: Male
  Weight: 58 kg

DRUGS (10)
  1. BEVACIZUMAB. [Suspect]
     Active Substance: BEVACIZUMAB
     Indication: SQUAMOUS CELL CARCINOMA OF HEAD AND NECK
     Dosage: TOTAL DOSE ADMINISTERED THIS COURSE 870 MG
     Route: 042
     Dates: start: 20120720
  2. FENTANYL. [Concomitant]
     Active Substance: FENTANYL
     Route: 065
  3. XANAX [Concomitant]
     Active Substance: ALPRAZOLAM
     Route: 048
  4. ZOFRAN [Concomitant]
     Active Substance: ONDANSETRON HYDROCHLORIDE
     Route: 048
  5. CISPLATINE [Suspect]
     Active Substance: CISPLATIN
     Indication: SQUAMOUS CELL CARCINOMA OF HEAD AND NECK
     Dosage: TOTAL DOSE ADMINISTERED THIS COURSE 127 MG
     Route: 042
     Dates: start: 20120720
  6. DOCETAXEL. [Suspect]
     Active Substance: DOCETAXEL
     Indication: SQUAMOUS CELL CARCINOMA OF HEAD AND NECK
     Dosage: TOTAL DOSE ADMINISTERED THIS COURSE 127 MG
     Route: 042
     Dates: start: 20120720
  7. OXYCONTIN [Concomitant]
     Active Substance: OXYCODONE HYDROCHLORIDE
     Route: 048
  8. PROMETHAZINE [Concomitant]
     Active Substance: PROMETHAZINE\PROMETHAZINE HYDROCHLORIDE
     Route: 048
  9. DEXAMETHASONE. [Concomitant]
     Active Substance: DEXAMETHASONE
     Dosage: PRIOR TO DAY1 OF CHEMO TILL DAY 3 OF CHEMO
     Route: 048
  10. SCOPOLAMINE [Concomitant]
     Active Substance: SCOPOLAMINE
     Route: 062

REACTIONS (1)
  - Neoplasm progression [Fatal]

NARRATIVE: CASE EVENT DATE: 20120724
